FAERS Safety Report 16928476 (Version 2)
Quarter: 2019Q4

REPORT INFORMATION
  Report Type: Spontaneous
  Country: NL (occurrence: NL)
  Receive Date: 20191017
  Receipt Date: 20191226
  Transmission Date: 20200122
  Serious: Yes (Life-Threatening)
  Sender: FDA-Public Use
  Company Number: NL-TEVA-2019-NL-1122394

PATIENT
  Age: 82 Year
  Sex: Male
  Weight: 90 kg

DRUGS (6)
  1. ACETYLSALICYLZUUR TABLET 100MG (ORAAL) [Concomitant]
     Dosage: 1 X PER DAY 1 PIECE (100 MILLIGRAM)
  2. TICAGRELOR TABLET 90MG (ORAAL) [Concomitant]
     Dosage: 2 X PER DAY 1 PIECE (90 MILLIGRAM)
  3. PARACETAMOL TABLET  500MG (ORAAL) [Concomitant]
     Dosage: 1 X PER DAY 1 PIECE (500 MILLIGRAM)
  4. BISOPROLOL TABLET   2,5MG (ORAAL) [Concomitant]
     Dosage: 2 X PER DAY 0.5 PIECE (1 MILLIGRAM)
  5. RAMIPRIL TABLET, 2,5 MG (MILLIGRAM) [Suspect]
     Active Substance: RAMIPRIL
     Indication: PERCUTANEOUS CORONARY INTERVENTION
     Dosage: 2 X PER DAY 0.5 PIECE (1 MILLIGRAM)
     Dates: start: 201908, end: 20190911
  6. ATORVASTATINE TABLET 20MG (ALS CA-ZOUT-3-WATER) (ORAAL) [Concomitant]
     Dosage: 1 X PER DAY 1 PIECE (20 MILLIGRAM)

REACTIONS (1)
  - Angioedema [Recovering/Resolving]

NARRATIVE: CASE EVENT DATE: 20190911
